FAERS Safety Report 24588823 (Version 2)
Quarter: 2024Q4

REPORT INFORMATION
  Report Type: Spontaneous
  Country: US (occurrence: US)
  Receive Date: 20241107
  Receipt Date: 20241126
  Transmission Date: 20250114
  Serious: Yes (Hospitalization)
  Sender: PFIZER
  Company Number: US-PFIZER INC-PV202400143313

PATIENT
  Age: 58 Year
  Sex: Female

DRUGS (2)
  1. TUKYSA [Interacting]
     Active Substance: TUCATINIB
     Dosage: 300 MG (2 TABS OF 150 MG), 2X/DAY
  2. TAMSULOSIN [Interacting]
     Active Substance: TAMSULOSIN
     Dosage: UNK

REACTIONS (7)
  - Renal disorder [Unknown]
  - Erythema [Unknown]
  - Skin exfoliation [Unknown]
  - Skin fissures [Unknown]
  - Pyrexia [Unknown]
  - Rash pruritic [Unknown]
  - Drug interaction [Unknown]
